FAERS Safety Report 25369351 (Version 1)
Quarter: 2025Q2

REPORT INFORMATION
  Report Type: Spontaneous
  Country: US (occurrence: None)
  Receive Date: 20250527
  Receipt Date: 20250527
  Transmission Date: 20250716
  Serious: Yes (Hospitalization)
  Sender: FDA-CTU
  Company Number: None

PATIENT
  Age: 52 Year
  Sex: Female
  Weight: 69.6 kg

DRUGS (1)
  1. ENFORTUMAB VEDOTIN [Suspect]
     Active Substance: ENFORTUMAB VEDOTIN
     Indication: Rectal adenocarcinoma
     Route: 042
     Dates: start: 20250509

REACTIONS (8)
  - Burning sensation [None]
  - Erythema [None]
  - Skin tightness [None]
  - Nausea [None]
  - Vomiting [None]
  - Rash maculo-papular [None]
  - Dialysis [None]
  - Acidosis [None]

NARRATIVE: CASE EVENT DATE: 20250523
